FAERS Safety Report 6138875-0 (Version None)
Quarter: 2009Q1

REPORT INFORMATION
  Report Type: 
  Country: None (occurrence: None)
  Receive Date: 20090331
  Receipt Date: 20090325
  Transmission Date: 20090719
  Serious: No
  Sender: FDA-Public Use
  Company Number: US-B.I. PHARMACEUTICALS,INC./RIDGEFIELD-2006-BP-13871BP

PATIENT
  Sex: Female

DRUGS (4)
  1. COMBIVENT [Suspect]
     Indication: CHRONIC OBSTRUCTIVE PULMONARY DISEASE
     Dosage: 2PUF
     Route: 055
     Dates: start: 20040117, end: 20040118
  2. ADVAIR DISKUS 100/50 [Suspect]
     Indication: CHRONIC OBSTRUCTIVE PULMONARY DISEASE
  3. AVALIDE [Concomitant]
     Indication: HYPERTENSION
  4. CLIMARA PATCHES [Concomitant]
     Indication: MENOPAUSE
     Route: 062

REACTIONS (7)
  - ADVERSE DRUG REACTION [None]
  - BEDRIDDEN [None]
  - DYSPNOEA [None]
  - MEDICATION ERROR [None]
  - SECRETION DISCHARGE [None]
  - SKIN DISCOLOURATION [None]
  - UPPER RESPIRATORY TRACT INFECTION [None]
